FAERS Safety Report 14246362 (Version 1)
Quarter: 2017Q4

REPORT INFORMATION
  Report Type: Report from Study
  Country: US (occurrence: US)
  Receive Date: 20171204
  Receipt Date: 20171204
  Transmission Date: 20180321
  Serious: Yes (Hospitalization)
  Sender: FDA-Public Use
  Company Number: US-TEVA-2017-US-828475

PATIENT
  Age: 27 Year
  Sex: Female
  Weight: 104 kg

DRUGS (8)
  1. CLOZAPINE. [Suspect]
     Active Substance: CLOZAPINE
  2. CLOZAPINE. [Suspect]
     Active Substance: CLOZAPINE
     Indication: SCHIZOAFFECTIVE DISORDER
     Route: 065
  3. ZOLOFT [Concomitant]
     Active Substance: SERTRALINE HYDROCHLORIDE
  4. DEPAKOTE [Concomitant]
     Active Substance: DIVALPROEX SODIUM
  5. ONFI [Concomitant]
     Active Substance: CLOBAZAM
  6. TOPAMAX [Concomitant]
     Active Substance: TOPIRAMATE
  7. TERBENDYL [Concomitant]
  8. LATUDA [Suspect]
     Active Substance: LURASIDONE HYDROCHLORIDE
     Route: 065

REACTIONS (5)
  - Drug ineffective [Unknown]
  - Seizure [Not Recovered/Not Resolved]
  - Withdrawal syndrome [Recovered/Resolved]
  - Hallucination [Not Recovered/Not Resolved]
  - Weight increased [Unknown]

NARRATIVE: CASE EVENT DATE: 201506
